FAERS Safety Report 9630221 (Version 2)
Quarter: 2013Q4

REPORT INFORMATION
  Report Type: Spontaneous
  Country: GB (occurrence: GB)
  Receive Date: 20131017
  Receipt Date: 20131017
  Transmission Date: 20140711
  Serious: Yes (Hospitalization)
  Sender: FDA-Public Use
  Company Number: GB-WATSON-2003-05011

PATIENT
  Age: 86 Year
  Sex: Male

DRUGS (4)
  1. ATENOLOL (UNKNOWN) [Suspect]
     Indication: PRODUCT USED FOR UNKNOWN INDICATION
     Dosage: DOSE: 50 MG OD
     Route: 065
  2. DIGOXIN (UNKNOWN) [Suspect]
     Indication: PRODUCT USED FOR UNKNOWN INDICATION
     Dosage: DOSE 125 MCG OD
     Route: 065
  3. WARFARIN [Concomitant]
     Indication: PRODUCT USED FOR UNKNOWN INDICATION
     Dosage: UNK
     Route: 065
  4. LISINOPRIL [Concomitant]
     Indication: PRODUCT USED FOR UNKNOWN INDICATION
     Dosage: DOSE: 20 MG OD
     Route: 065

REACTIONS (5)
  - Bradycardia [Recovering/Resolving]
  - Ascites [Recovering/Resolving]
  - Lethargy [Recovering/Resolving]
  - Circulatory collapse [Recovering/Resolving]
  - Crepitations [Recovering/Resolving]
